FAERS Safety Report 4414498-6 (Version None)
Quarter: 2004Q3

REPORT INFORMATION
  Report Type: 
  Country: None (occurrence: None)
  Receive Date: 20040702
  Receipt Date: 20030505
  Transmission Date: 20050211
  Serious: Yes (Other)
  Sender: FDA-Public Use
  Company Number: 337499

PATIENT
  Sex: Female

DRUGS (4)
  1. KLONOPIN [Suspect]
     Indication: SLEEP DISORDER
     Dosage: 0.5 MG DAILY ORAL
     Route: 048
  2. CELEXA [Concomitant]
  3. PERCOCET [Concomitant]
  4. SEVERAL UNKNOWN COMEDICATIONS (GENERIC COMPONENTS(S) UNKNOWN) [Concomitant]

REACTIONS (2)
  - DEPRESSION [None]
  - HALLUCINATION [None]
